FAERS Safety Report 4890508-7 (Version None)
Quarter: 2006Q1

REPORT INFORMATION
  Report Type: 
  Country: None (occurrence: None)
  Receive Date: 20060123
  Receipt Date: 20060106
  Transmission Date: 20060701
  Serious: Yes (Hospitalization)
  Sender: FDA-Public Use
  Company Number: 2006000060

PATIENT
  Age: 75 Year
  Sex: Male

DRUGS (20)
  1. TARCEVA [Suspect]
     Indication: PANCREATIC CARCINOMA
     Dosage: SEE IMAGE, ORAL
     Route: 048
     Dates: start: 20051205, end: 20051230
  2. TARCEVA [Suspect]
     Indication: PANCREATIC CARCINOMA
     Dosage: SEE IMAGE, ORAL
     Route: 048
     Dates: start: 20051231
  3. DEXAMETHASONE [Concomitant]
  4. ZANTAC [Concomitant]
  5. CLARINEX [Concomitant]
  6. ANZEMET [Concomitant]
  7. PROTONIX [Concomitant]
  8. PANCREASE (PANCRELIPASE) [Concomitant]
  9. MEGACE [Concomitant]
  10. DIGOXIN [Concomitant]
  11. COUMADIN [Concomitant]
  12. PREDNISONE [Concomitant]
  13. MARINOL [Concomitant]
  14. LASIX [Concomitant]
  15. CARAFATE [Concomitant]
  16. FLUDROCORTISONE ACETATE [Concomitant]
  17. K-DUR 10 [Concomitant]
  18. DIULO (METOLAZONE) [Concomitant]
  19. TAXOTERE [Concomitant]
  20. GEMZAR [Concomitant]

REACTIONS (10)
  - ANOREXIA [None]
  - BLOOD COUNT ABNORMAL [None]
  - DIARRHOEA [None]
  - ERYTHEMA OF EYELID [None]
  - FATIGUE [None]
  - HYPOTENSION [None]
  - LACRIMATION INCREASED [None]
  - LOSS OF CONSCIOUSNESS [None]
  - VISION BLURRED [None]
  - WEIGHT DECREASED [None]
